FAERS Safety Report 8491632-2 (Version None)
Quarter: 2012Q3

REPORT INFORMATION
  Report Type: 
  Country: None (occurrence: None)
  Receive Date: 20120706
  Receipt Date: 20120702
  Transmission Date: 20120928
  Serious: Yes (Other)
  Sender: FDA-Public Use
  Company Number: US-PFIZER INC-2012150934

PATIENT
  Sex: Female
  Weight: 113.38 kg

DRUGS (10)
  1. DECADRON [Suspect]
     Indication: INFLAMMATION
     Dosage: INJECTION ONCE
     Dates: start: 20120620, end: 20120620
  2. TYLENOL W/ CODEINE [Suspect]
     Indication: FIBROMYALGIA
     Dosage: 300/30 MG, 2X/DAY
  3. TYLENOL W/ CODEINE [Suspect]
     Dosage: UNK
  4. CYMBALTA [Concomitant]
     Indication: DEPRESSION
     Dosage: 50 MG, 2X/DAY
  5. XANAX [Concomitant]
     Indication: ANXIETY
     Dosage: 1 MG, 2X/DAY
  6. LYRICA [Suspect]
     Indication: FIBROMYALGIA
     Dosage: 300 MG, 2X/DAY
     Route: 048
     Dates: start: 20080101
  7. DECADRON [Suspect]
     Dosage: UNK
     Route: 048
     Dates: start: 20120620
  8. MULTI-VITAMINS [Concomitant]
     Dosage: DAILY
  9. LYRICA [Suspect]
     Dosage: 300 MG, 2X/DAY
     Route: 048
  10. TRAZODONE [Concomitant]
     Dosage: 200 MG, DAILY

REACTIONS (19)
  - INFLAMMATION [None]
  - PAIN IN EXTREMITY [None]
  - PAIN [None]
  - VITAMIN B12 DECREASED [None]
  - OVERDOSE [None]
  - GAIT DISTURBANCE [None]
  - DRUG HYPERSENSITIVITY [None]
  - MIGRAINE [None]
  - SERUM FERRITIN DECREASED [None]
  - ACTIVITIES OF DAILY LIVING IMPAIRED [None]
  - PARAESTHESIA [None]
  - PAIN OF SKIN [None]
  - DRUG INEFFECTIVE [None]
  - BURNING SENSATION [None]
  - BLOOD IRON DECREASED [None]
  - SKIN EXFOLIATION [None]
  - FEELING ABNORMAL [None]
  - RASH [None]
  - BACK PAIN [None]
